FAERS Safety Report 21772963 (Version 1)
Quarter: 2022Q4

REPORT INFORMATION
  Report Type: Spontaneous
  Country: US (occurrence: None)
  Receive Date: 20221223
  Receipt Date: 20221223
  Transmission Date: 20230113
  Serious: Yes (Other)
  Sender: FDA-Public Use
  Company Number: None

PATIENT
  Age: 72 Year
  Sex: Female
  Weight: 59.85 kg

DRUGS (11)
  1. OSELTAMIVIR PHOSPHATE [Suspect]
     Active Substance: OSELTAMIVIR PHOSPHATE
     Indication: Influenza
     Dosage: FREQUENCY : TWICE A DAY;?
     Route: 048
     Dates: start: 20221216, end: 20221220
  2. QUINAPRIL [Concomitant]
     Active Substance: QUINAPRIL
  3. HYDROCHLOROTHIAZIDE [Concomitant]
     Active Substance: HYDROCHLOROTHIAZIDE
  4. MYRBETRIQ [Concomitant]
     Active Substance: MIRABEGRON
  5. MEDROXYPROGESTERONE [Concomitant]
     Active Substance: MEDROXYPROGESTERONE
  6. OSELTAMIVIR [Concomitant]
     Active Substance: OSELTAMIVIR
  7. MAGNESIUM [Concomitant]
     Active Substance: MAGNESIUM
  8. VITAMIN D3 [Concomitant]
     Active Substance: CHOLECALCIFEROL
  9. ARES2 [Concomitant]
  10. Bcomplex multivitamin [Concomitant]
  11. curcumin with pepperine [Concomitant]

REACTIONS (14)
  - Influenza [None]
  - Pyrexia [None]
  - Pain [None]
  - Headache [None]
  - Cough [None]
  - Lymphoedema [None]
  - Feeling hot [None]
  - Swelling face [None]
  - Joint swelling [None]
  - Feeling jittery [None]
  - Asthenia [None]
  - Blood pressure increased [None]
  - Peripheral swelling [None]
  - Angioedema [None]

NARRATIVE: CASE EVENT DATE: 20221220
